FAERS Safety Report 9487651 (Version 2)
Quarter: 2013Q3

REPORT INFORMATION
  Report Type: Spontaneous
  Country: US (occurrence: US)
  Receive Date: 20130725
  Receipt Date: 20130725
  Transmission Date: 20140515
  Serious: Yes (Other)
  Sender: FDA-Public Use
  Company Number: US-GLAXOSMITHKLINE-A0857206A

PATIENT
  Sex: Male
  Weight: 131.8 kg

DRUGS (5)
  1. AVANDIA [Suspect]
     Indication: DIABETES MELLITUS
     Dosage: 8MG PER DAY
     Route: 048
     Dates: start: 20000807, end: 20060310
  2. GLUCOPHAGE [Concomitant]
  3. PRINIVIL [Concomitant]
  4. LIPITOR [Concomitant]
  5. VIAGRA [Concomitant]

REACTIONS (1)
  - Cardiac failure congestive [Unknown]
